FAERS Safety Report 8842636 (Version 1)
Quarter: 2012Q4

REPORT INFORMATION
  Report Type: Report from Study
  Country: NL (occurrence: NL)
  Receive Date: 20121016
  Receipt Date: 20121016
  Transmission Date: 20130627
  Serious: Yes (Hospitalization)
  Sender: FDA-Public Use
  Company Number: NL-BAXTER-2012BAX016171

PATIENT
  Age: 64 Year
  Sex: Female

DRUGS (2)
  1. BICARBONATE ION\CHLORIDE ION\GLUCOSE, LIQUID\SODIUM [Suspect]
     Indication: AUTOMATED PERITONEAL DIALYSIS
     Route: 033
  2. EXTRANEAL [Suspect]
     Indication: AUTOMATED PERITONEAL DIALYSIS
     Route: 033

REACTIONS (1)
  - Temporal arteritis [Not Recovered/Not Resolved]
